FAERS Safety Report 15545083 (Version 10)
Quarter: 2019Q2

REPORT INFORMATION
  Report Type: Spontaneous
  Country: US (occurrence: US)
  Receive Date: 20181024
  Receipt Date: 20190422
  Transmission Date: 20190711
  Serious: Yes (Hospitalization)
  Sender: FDA-Public Use
  Company Number: US-BIOGEN-2018BI00647527

PATIENT
  Age: 45 Year
  Sex: Female

DRUGS (2)
  1. PLEGRIDY [Suspect]
     Active Substance: PEGINTERFERON BETA-1A
     Indication: MULTIPLE SCLEROSIS
     Route: 050
     Dates: start: 20170502, end: 20181004
  2. PLEGRIDY [Suspect]
     Active Substance: PEGINTERFERON BETA-1A
     Route: 050
     Dates: end: 20181024

REACTIONS (14)
  - Vertigo [Not Recovered/Not Resolved]
  - Insomnia [Unknown]
  - Muscle spasms [Not Recovered/Not Resolved]
  - Cystitis [Unknown]
  - Arthralgia [Unknown]
  - Vision blurred [Not Recovered/Not Resolved]
  - Multiple sclerosis relapse [Unknown]
  - Stress [Not Recovered/Not Resolved]
  - Pain [Unknown]
  - Visual impairment [Not Recovered/Not Resolved]
  - Balance disorder [Not Recovered/Not Resolved]
  - Peripheral swelling [Not Recovered/Not Resolved]
  - Mobility decreased [Unknown]
  - Urinary tract infection [Unknown]

NARRATIVE: CASE EVENT DATE: 201807
